FAERS Safety Report 5534319-8 (Version None)
Quarter: 2007Q4

REPORT INFORMATION
  Report Type: 
  Country: None (occurrence: None)
  Receive Date: 20071120
  Receipt Date: 20070606
  Transmission Date: 20080405
  Serious: Yes (Hospitalization)
  Sender: FDA-Public Use
  Company Number: HQWYE504807JUN07

PATIENT
  Age: 22 Year
  Sex: Female

DRUGS (3)
  1. ZOSYN [Suspect]
     Indication: PYREXIA
     Dosage: 4.5 GRAMS EVERY 12 HOURS, INTRAVENOUS
     Route: 042
  2. ZOLOFT [Concomitant]
  3. VICODIN [Concomitant]

REACTIONS (2)
  - PYREXIA [None]
  - RASH [None]
